FAERS Safety Report 7291221-1 (Version None)
Quarter: 2011Q1

REPORT INFORMATION
  Report Type: 
  Country: None (occurrence: None)
  Receive Date: 20110214
  Receipt Date: 20110208
  Transmission Date: 20110831
  Serious: Yes (Hospitalization)
  Sender: FDA-Public Use
  Company Number: BR-ABBOTT-10P-020-0692573-00

PATIENT
  Sex: Male
  Weight: 86 kg

DRUGS (7)
  1. CYCLOSPORINE [Suspect]
     Dates: start: 20101230
  2. OMEPRAZOLE [Concomitant]
     Indication: PROPHYLAXIS AGAINST GASTROINTESTINAL ULCER
     Dates: start: 20101217
  3. HUMIRA [Suspect]
     Indication: PSORIATIC ARTHROPATHY
     Route: 058
     Dates: start: 20100601, end: 20100801
  4. HUMIRA [Suspect]
     Dates: start: 20110127
  5. CYCLOSPORINE [Suspect]
     Indication: PSORIASIS
     Route: 048
     Dates: start: 20101217
  6. HUMIRA [Suspect]
     Route: 058
     Dates: start: 20100901, end: 20101201
  7. CORTICOSTEROIDS [Concomitant]
     Indication: PSORIASIS

REACTIONS (15)
  - PYREXIA [None]
  - INJECTION SITE ERYTHEMA [None]
  - PSORIASIS [None]
  - INJECTION SITE PUSTULE [None]
  - INJECTION SITE INDURATION [None]
  - RASH PUSTULAR [None]
  - INJECTION SITE PAIN [None]
  - PSORIATIC ARTHROPATHY [None]
  - ABASIA [None]
  - LACERATION [None]
  - RHEUMATOID ARTHRITIS [None]
  - INFECTION [None]
  - HYPERTENSION [None]
  - PAIN [None]
  - MOBILITY DECREASED [None]
